FAERS Safety Report 5228223-2 (Version None)
Quarter: 2007Q1

REPORT INFORMATION
  Report Type: 
  Country: None (occurrence: None)
  Receive Date: 20070205
  Receipt Date: 20070123
  Transmission Date: 20070707
  Serious: Yes (Hospitalization)
  Sender: FDA-Public Use
  Company Number: PHEH2007US01189

PATIENT
  Age: 33 Year
  Sex: Male

DRUGS (1)
  1. TRILEPTAL [Suspect]
     Dosage: 150 MG, QD
     Dates: start: 20060501, end: 20061101

REACTIONS (4)
  - ABSCESS DRAINAGE [None]
  - AURICULAR SWELLING [None]
  - CONTUSION [None]
  - FURUNCLE [None]
